FAERS Safety Report 7210761-4 (Version None)
Quarter: 2011Q1

REPORT INFORMATION
  Report Type: 
  Country: None (occurrence: None)
  Receive Date: 20110105
  Receipt Date: 20101014
  Transmission Date: 20110831
  Serious: Yes (Death, Life-Threatening)
  Sender: FDA-Public Use
  Company Number: IT-GENZYME-CLOF-1000847

PATIENT
  Sex: Male
  Weight: 57 kg

DRUGS (4)
  1. EVOLTRA [Suspect]
     Indication: ACUTE MYELOID LEUKAEMIA
     Dosage: 32 MG, QD
     Route: 042
     Dates: start: 20100122, end: 20100125
  2. TEMSIROLIMUS [Suspect]
     Indication: ACUTE MYELOID LEUKAEMIA
     Dosage: 25 MG, QD
     Route: 042
     Dates: start: 20100122, end: 20100122
  3. CEFTAZIDIME [Concomitant]
     Indication: FEBRILE NEUTROPENIA
     Dosage: UNK
     Route: 042
     Dates: start: 20100126
  4. ITRACONAZOLE [Concomitant]
     Indication: PRODUCT USED FOR UNKNOWN INDICATION
     Dosage: 600 MG, UNK
     Dates: start: 20100122

REACTIONS (3)
  - ACUTE MYELOID LEUKAEMIA [None]
  - CONVULSION [None]
  - RENAL FAILURE ACUTE [None]
